FAERS Safety Report 12638121 (Version 1)
Quarter: 2016Q3

REPORT INFORMATION
  Report Type: Spontaneous
  Country: US (occurrence: US)
  Receive Date: 20160809
  Receipt Date: 20160809
  Transmission Date: 20161109
  Serious: No
  Sender: FDA-Public Use
  Company Number: US-SA-2016SA119816

PATIENT
  Age: 85 Year
  Sex: Female

DRUGS (17)
  1. PRALUENT [Suspect]
     Active Substance: ALIROCUMAB
     Indication: TYPE IIA HYPERLIPIDAEMIA
     Route: 058
     Dates: start: 20160416, end: 201606
  2. ALIROCUMAB PREFILLED PEN [Concomitant]
     Active Substance: ALIROCUMAB
     Dates: start: 20160416, end: 201606
  3. CARDURA [Concomitant]
     Active Substance: DOXAZOSIN MESYLATE
  4. PANTHENOL/RETINOL/THIAMINE HYDROCHLORIDE/ASCORBIC ACID/ERGOCALCIFEROL/FOLIC ACID/RIBOFLAVIN/NICOTINA [Concomitant]
  5. ASPIRIN. [Concomitant]
     Active Substance: ASPIRIN
  6. AMLODIPINE [Concomitant]
     Active Substance: AMLODIPINE BESYLATE
  7. TERAZOSIN [Concomitant]
     Active Substance: TERAZOSIN\TERAZOSIN HYDROCHLORIDE
  8. CALCITONIN [Concomitant]
     Active Substance: CALCITONIN
  9. FISH OIL [Concomitant]
     Active Substance: FISH OIL
  10. PROAIR HFA [Concomitant]
     Active Substance: ALBUTEROL SULFATE
  11. CALTRATE [Concomitant]
     Active Substance: CALCIUM CARBONATE
  12. POTASSIUM CHLORIDE. [Concomitant]
     Active Substance: POTASSIUM CHLORIDE
  13. CLINDAMYCIN [Concomitant]
     Active Substance: CLINDAMYCIN\CLINDAMYCIN PHOSPHATE
  14. SPIRONOLACTONE. [Concomitant]
     Active Substance: SPIRONOLACTONE
  15. DULERA [Concomitant]
     Active Substance: FORMOTEROL FUMARATE DIHYDRATE\MOMETASONE FUROATE
  16. NITROGLYCERIN. [Concomitant]
     Active Substance: NITROGLYCERIN
  17. ATENOLOL. [Concomitant]
     Active Substance: ATENOLOL

REACTIONS (3)
  - Peripheral swelling [Recovering/Resolving]
  - Feeling abnormal [Recovering/Resolving]
  - Somnolence [Recovering/Resolving]

NARRATIVE: CASE EVENT DATE: 2016
